FAERS Safety Report 5007480-1 (Version None)
Quarter: 2006Q2

REPORT INFORMATION
  Report Type: 
  Country: None (occurrence: None)
  Receive Date: 20060517
  Receipt Date: 20060515
  Transmission Date: 20061013
  Serious: Yes (Hospitalization)
  Sender: FDA-Public Use
  Company Number: 215070

PATIENT
  Age: 81 Year
  Sex: Female
  Weight: 58.5 kg

DRUGS (6)
  1. BEVACIZUMAB (BEVACIZUMAB) PWDR + SOLVENT, INFUSION SOLN, 100MG [Suspect]
     Indication: COLORECTAL CANCER
     Dosage: 10 MG/KG, Q2W, INTRAVENOUS
     Route: 042
     Dates: end: 20050309
  2. CAPECITABINE(CAPECITABINE) [Suspect]
     Indication: COLORECTAL CANCER
     Dosage: 850 MG/M2, Q12H
     Dates: start: 20050223, end: 20050320
  3. OXALIPLATIN(OXALIPLATIN) [Suspect]
     Indication: COLORECTAL CANCER
     Dosage: 85 MG/M2, Q2W, INTRAVENOUS
     Route: 042
     Dates: start: 20050309, end: 20050309
  4. CLARITIN [Concomitant]
  5. MULTIVITAMIN [Concomitant]
  6. IRON TABLETS (IRON NOS) [Concomitant]

REACTIONS (15)
  - ACUTE PRERENAL FAILURE [None]
  - BLOOD CALCIUM DECREASED [None]
  - BLOOD POTASSIUM DECREASED [None]
  - DEHYDRATION [None]
  - DIARRHOEA [None]
  - ELECTROLYTE IMBALANCE [None]
  - FATIGUE [None]
  - HYPERGLYCAEMIA [None]
  - HYPOTENSION [None]
  - NAUSEA [None]
  - REFUSAL OF TREATMENT BY PATIENT [None]
  - TACHYCARDIA [None]
  - URINE ANALYSIS ABNORMAL [None]
  - VOMITING [None]
  - WEIGHT DECREASED [None]
